FAERS Safety Report 15218718 (Version 1)
Quarter: 2018Q3

REPORT INFORMATION
  Report Type: Spontaneous
  Country: US (occurrence: US)
  Receive Date: 20180731
  Receipt Date: 20180731
  Transmission Date: 20181010
  Serious: Yes (Hospitalization)
  Sender: FDA-Public Use
  Company Number: US-HETERO CORPORATE-HET2018US00716

PATIENT
  Age: 69 Year
  Sex: Female

DRUGS (3)
  1. VITAMIN D                          /00107901/ [Concomitant]
     Active Substance: ERGOCALCIFEROL
     Indication: VITAMIN D DEFICIENCY
     Route: 065
  2. TERIPARATIDE ACETATE [Interacting]
     Active Substance: TERIPARATIDE ACETATE
     Indication: OSTEOPOROSIS
     Route: 065
  3. LITHIUM. [Suspect]
     Active Substance: LITHIUM
     Indication: BIPOLAR DISORDER
     Route: 065

REACTIONS (3)
  - Hypercalcaemia [Recovered/Resolved]
  - Drug interaction [Unknown]
  - Hyperparathyroidism [Unknown]
